FAERS Safety Report 17654734 (Version 4)
Quarter: 2023Q1

REPORT INFORMATION
  Report Type: Spontaneous
  Country: US (occurrence: None)
  Receive Date: 20200410
  Receipt Date: 20230106
  Transmission Date: 20230417
  Serious: Yes (Other)
  Sender: FDA-Public Use
  Company Number: 2018SF65965

PATIENT
  Age: 27864 Day
  Sex: Female
  Weight: 62.9 kg

DRUGS (64)
  1. NEXIUM [Suspect]
     Active Substance: ESOMEPRAZOLE MAGNESIUM
     Indication: Gastrooesophageal reflux disease
     Route: 048
     Dates: start: 2002, end: 2016
  2. NEXIUM [Suspect]
     Active Substance: ESOMEPRAZOLE MAGNESIUM
     Indication: Gastrooesophageal reflux disease
     Route: 048
     Dates: start: 2010, end: 2015
  3. NEXIUM [Suspect]
     Active Substance: ESOMEPRAZOLE MAGNESIUM
     Indication: Gastrooesophageal reflux disease
     Route: 048
     Dates: start: 20141023
  4. NEXIUM [Suspect]
     Active Substance: ESOMEPRAZOLE MAGNESIUM
     Indication: Gastrooesophageal reflux disease
     Dosage: GENERIC
     Route: 065
     Dates: start: 2015
  5. NEXIUM [Suspect]
     Active Substance: ESOMEPRAZOLE MAGNESIUM
     Indication: Gastrooesophageal reflux disease
     Route: 048
     Dates: start: 20120901
  6. DEXILANT [Suspect]
     Active Substance: DEXLANSOPRAZOLE
     Indication: Gastrooesophageal reflux disease
     Route: 065
     Dates: start: 2010, end: 2015
  7. DEXILANT [Suspect]
     Active Substance: DEXLANSOPRAZOLE
     Indication: Gastrooesophageal reflux disease
     Dosage: 30-60 MG; TWICE DAILY
     Route: 065
     Dates: start: 20150721, end: 2016
  8. DEXILANT [Suspect]
     Active Substance: DEXLANSOPRAZOLE
     Indication: Gastrooesophageal reflux disease
     Route: 065
     Dates: start: 20150721
  9. ALDACTONE [Concomitant]
     Active Substance: SPIRONOLACTONE
     Indication: Blood pressure abnormal
     Route: 065
     Dates: start: 1982
  10. ALDACTONE [Concomitant]
     Active Substance: SPIRONOLACTONE
     Indication: Oedema
     Route: 065
     Dates: start: 1982
  11. NORVASC [Concomitant]
     Active Substance: AMLODIPINE BESYLATE
     Indication: Blood pressure abnormal
     Route: 065
     Dates: start: 2006
  12. LEFLUNOMIDE [Concomitant]
     Active Substance: LEFLUNOMIDE
     Route: 065
  13. HYDROCODONE BITARTRATE AND ACETAMINOPHEN [Concomitant]
     Active Substance: ACETAMINOPHEN\HYDROCODONE BITARTRATE
     Route: 065
  14. TRAMADOL [Concomitant]
     Active Substance: TRAMADOL
     Indication: Pain
     Route: 065
     Dates: start: 2008, end: 2013
  15. DIOVAN [Concomitant]
     Active Substance: VALSARTAN
     Indication: Blood pressure abnormal
     Route: 065
     Dates: start: 2008, end: 2010
  16. DIOVAN [Concomitant]
     Active Substance: VALSARTAN
     Indication: Cardiac failure
     Route: 065
     Dates: start: 2008, end: 2010
  17. AMOXICILLIN [Concomitant]
     Active Substance: AMOXICILLIN
     Indication: Infection
     Route: 065
     Dates: start: 2008, end: 2010
  18. ZOVIRAX [Concomitant]
     Active Substance: ACYCLOVIR
     Indication: Infection
     Route: 065
     Dates: start: 2009
  19. TAURINE/AMINOCAPROIC ACID/SULFAMETHOXAZOLE SODIUM/DIPOTASSIUM GLYCYRRH [Concomitant]
     Indication: Infection
     Route: 065
     Dates: start: 2014
  20. CIPROFLOXACIN [Concomitant]
     Active Substance: CIPROFLOXACIN
     Indication: Infection
     Route: 065
     Dates: start: 2009, end: 2016
  21. DOXYCYCLINE [Concomitant]
     Active Substance: DOXYCYCLINE
     Indication: Infection
     Route: 065
     Dates: start: 2009, end: 2016
  22. CEFUROXIME [Concomitant]
     Active Substance: CEFUROXIME
     Indication: Bacterial infection
     Route: 065
     Dates: start: 2010
  23. LEVAQUIN [Concomitant]
     Active Substance: LEVOFLOXACIN
     Indication: Infection
     Route: 065
     Dates: start: 2011
  24. LEVAQUIN [Concomitant]
     Active Substance: LEVOFLOXACIN
     Indication: Infection
     Dosage: LEVOFLOXACIN
     Route: 065
     Dates: start: 2013
  25. CELEBREX [Concomitant]
     Active Substance: CELECOXIB
     Indication: Pain
     Route: 065
     Dates: start: 2010
  26. BUPIVACAINE HYDROCHLORIDE/LIDOCAINE HYDROCHLORIDE/KETOROLAC TROMETHAMI [Concomitant]
     Indication: Pain
     Route: 065
     Dates: start: 2011
  27. TOPROL XL [Concomitant]
     Active Substance: METOPROLOL SUCCINATE
     Indication: Blood pressure abnormal
     Route: 065
     Dates: start: 2003
  28. AMBIEN [Concomitant]
     Active Substance: ZOLPIDEM TARTRATE
     Indication: Sleep disorder
     Route: 065
     Dates: start: 2017
  29. ZOFRAN [Concomitant]
     Active Substance: ONDANSETRON HYDROCHLORIDE
     Indication: Nausea
     Route: 065
     Dates: start: 2014
  30. FOLIC ACID [Concomitant]
     Active Substance: FOLIC ACID
     Indication: Routine health maintenance
     Route: 065
     Dates: start: 2016
  31. VITAMIN D3 [Concomitant]
     Active Substance: CHOLECALCIFEROL
     Indication: Routine health maintenance
     Route: 065
     Dates: start: 2010
  32. PEPCID [Concomitant]
     Active Substance: FAMOTIDINE
     Dates: start: 2019
  33. PEPCID [Concomitant]
     Active Substance: FAMOTIDINE
     Dosage: FAMOTIDINE-GENERIC
     Dates: start: 2019
  34. ZANTAC [Concomitant]
     Active Substance: RANITIDINE HYDROCHLORIDE
     Dosage: 150
     Dates: start: 2017, end: 2019
  35. MAALOX ANTACID [Concomitant]
     Active Substance: ALUMINUM HYDROXIDE\DIMETHICONE\MAGNESIUM HYDROXIDE
     Dates: start: 1982, end: 1992
  36. GAVISCON [Concomitant]
     Active Substance: ALUMINUM HYDROXIDE\MAGNESIUM CARBONATE
     Dates: start: 1986, end: 1996
  37. MILK OF MAGNESIA [Concomitant]
     Active Substance: MAGNESIUM HYDROXIDE
     Dosage: 30CC
  38. MIRTAZAPINE [Concomitant]
     Active Substance: MIRTAZAPINE
  39. PRAVASTATIN [Concomitant]
     Active Substance: PRAVASTATIN
  40. BENZONATATE [Concomitant]
     Active Substance: BENZONATATE
  41. PREDNISOLONE [Concomitant]
     Active Substance: PREDNISOLONE
  42. FLEXERIL [Concomitant]
     Active Substance: CYCLOBENZAPRINE HYDROCHLORIDE
     Dates: start: 2019
  43. FLEXERIL [Concomitant]
     Active Substance: CYCLOBENZAPRINE HYDROCHLORIDE
     Dosage: FAMOTIDINE-GENERIC
     Dates: start: 2019
  44. KENALOG [Concomitant]
     Active Substance: TRIAMCINOLONE ACETONIDE
     Dates: start: 2019
  45. KENALOG [Concomitant]
     Active Substance: TRIAMCINOLONE ACETONIDE
     Dosage: FAMOTIDINE-GENERIC
     Dates: start: 2019
  46. LIPITOR [Concomitant]
     Active Substance: ATORVASTATIN CALCIUM
  47. RITUXAN [Concomitant]
     Active Substance: RITUXIMAB
  48. DICYCLOMINE HYDROCHLORIDE [Concomitant]
     Active Substance: DICYCLOMINE HYDROCHLORIDE
  49. ASPIRIN [Concomitant]
     Active Substance: ASPIRIN
  50. PROMETHAZINE [Concomitant]
     Active Substance: PROMETHAZINE HYDROCHLORIDE
  51. PHENERGAN [Concomitant]
     Active Substance: PROMETHAZINE HYDROCHLORIDE
  52. CREON [Concomitant]
     Active Substance: PANCRELIPASE AMYLASE\PANCRELIPASE LIPASE\PANCRELIPASE PROTEASE
  53. CALCITRIOL [Concomitant]
     Active Substance: CALCITRIOL
  54. REMICADE [Concomitant]
     Active Substance: INFLIXIMAB
  55. GATIFLOXACIN [Concomitant]
     Active Substance: GATIFLOXACIN
  56. CEPHALEXIN [Concomitant]
     Active Substance: CEPHALEXIN
  57. ACETAMINOPHEN [Concomitant]
     Active Substance: ACETAMINOPHEN
  58. CYANOCOBALAMIN [Concomitant]
     Active Substance: CYANOCOBALAMIN
  59. ALBUTEROL [Concomitant]
     Active Substance: ALBUTEROL
  60. CILGAVIMAB [Concomitant]
     Active Substance: CILGAVIMAB
  61. DIPHENHYDRAMINE [Concomitant]
     Active Substance: DIPHENHYDRAMINE
  62. EPINEPHRINE [Concomitant]
     Active Substance: EPINEPHRINE
  63. METHYLPREDNISOLONE [Concomitant]
     Active Substance: METHYLPREDNISOLONE
  64. TIXAGEVIMAB [Concomitant]
     Active Substance: TIXAGEVIMAB

REACTIONS (7)
  - Acute kidney injury [Not Recovered/Not Resolved]
  - Chronic kidney disease [Not Recovered/Not Resolved]
  - Renal failure [Unknown]
  - Hyperparathyroidism secondary [Unknown]
  - Renal injury [Unknown]
  - Nephrogenic anaemia [Unknown]
  - Rebound acid hypersecretion [Unknown]

NARRATIVE: CASE EVENT DATE: 20120227
